FAERS Safety Report 11737202 (Version 2)
Quarter: 2015Q4

REPORT INFORMATION
  Report Type: Spontaneous
  Country: US (occurrence: US)
  Receive Date: 20151113
  Receipt Date: 20151120
  Transmission Date: 20160304
  Serious: Yes (Other)
  Sender: FDA-Public Use
  Company Number: US-HORIZON-DUE-0100-2015

PATIENT
  Age: 76 Year
  Sex: Male

DRUGS (4)
  1. DUEXIS [Suspect]
     Active Substance: FAMOTIDINE\IBUPROFEN
     Indication: MYALGIA
     Dosage: 1 DF THREE TIMES DAILY
     Dates: start: 20151106, end: 20151108
  2. LOSARTAN. [Concomitant]
     Active Substance: LOSARTAN
  3. XANAX [Concomitant]
     Active Substance: ALPRAZOLAM
  4. HYDROCODONE [Concomitant]
     Active Substance: HYDROCODONE

REACTIONS (3)
  - Fall [Recovered/Resolved]
  - Balance disorder [Unknown]
  - Disorientation [Recovered/Resolved]

NARRATIVE: CASE EVENT DATE: 20151108
